FAERS Safety Report 21779886 (Version 1)
Quarter: 2022Q4

REPORT INFORMATION
  Report Type: Spontaneous
  Country: BE (occurrence: BE)
  Receive Date: 20221226
  Receipt Date: 20221226
  Transmission Date: 20230112
  Serious: Yes (Other)
  Sender: FDA-Public Use
  Company Number: None

PATIENT
  Age: 50 Year
  Sex: Female
  Weight: 60 kg

DRUGS (2)
  1. AZITHROMYCIN [Suspect]
     Active Substance: AZITHROMYCIN
     Dosage: 500 MG
     Route: 055
     Dates: start: 202002
  2. FLUTICASONE FUROATE\VILANTEROL TRIFENATATE [Suspect]
     Active Substance: FLUTICASONE FUROATE\VILANTEROL TRIFENATATE
     Indication: Dyspnoea
     Dosage: UNK, 1X/DAY, (92 MICROGRAMS/22 MICROGRAMS)
     Route: 055
     Dates: start: 20200115, end: 20200612

REACTIONS (8)
  - Inflammation [Recovered/Resolved]
  - Urticaria [Recovered/Resolved]
  - Choking sensation [Recovered/Resolved]
  - Facial pain [Recovered/Resolved]
  - Facial paresis [Recovered/Resolved]
  - Dyspnoea [Recovered/Resolved]
  - Swelling face [Recovered/Resolved]
  - Epistaxis [Recovered/Resolved]
